FAERS Safety Report 13367000 (Version 1)
Quarter: 2017Q1

REPORT INFORMATION
  Report Type: Spontaneous
  Country: US (occurrence: US)
  Receive Date: 20170323
  Receipt Date: 20170323
  Transmission Date: 20170429
  Serious: Yes (Hospitalization, Disabling)
  Sender: FDA-Public Use
  Company Number: None

PATIENT
  Age: 33 Year
  Sex: Female
  Weight: 68.04 kg

DRUGS (2)
  1. LYTHYROXIN [Concomitant]
  2. MIRENA [Suspect]
     Active Substance: LEVONORGESTREL
     Dates: start: 20151202, end: 20170313

REACTIONS (17)
  - Headache [None]
  - Immune system disorder [None]
  - Syncope [None]
  - Back pain [None]
  - Weight increased [None]
  - Decreased appetite [None]
  - Abasia [None]
  - Productive cough [None]
  - Pain [None]
  - Dizziness [None]
  - Lymphadenopathy [None]
  - Movement disorder [None]
  - Dysarthria [None]
  - Device dislocation [None]
  - Mood swings [None]
  - Fatigue [None]
  - Vulvovaginal pruritus [None]

NARRATIVE: CASE EVENT DATE: 20170305
